FAERS Safety Report 8844320 (Version 1)
Quarter: 2012Q4

REPORT INFORMATION
  Report Type: 
  Country: US (occurrence: US)
  Receive Date: 20121017
  Receipt Date: 20121017
  Transmission Date: 20130627
  Serious: No
  Sender: FDA-Public Use
  Company Number: US-009507513-1210USA005584

PATIENT
  Age: 55 Year
  Sex: Female

DRUGS (6)
  1. SAPHRIS [Suspect]
     Dosage: 10 mg, hs
     Route: 060
  2. SAPHRIS [Suspect]
     Dosage: 10 mg, hs
     Route: 060
  3. WELLBUTRIN [Concomitant]
  4. TOPAMAX [Concomitant]
  5. CELEBREX [Concomitant]
  6. FOSAMAX [Concomitant]

REACTIONS (5)
  - Cardiac flutter [Recovered/Resolved]
  - Cardiac flutter [Recovered/Resolved]
  - Fear [Unknown]
  - Dizziness [Recovered/Resolved]
  - Dizziness [Recovered/Resolved]
